FAERS Safety Report 9382166 (Version 4)
Quarter: 2014Q2

REPORT INFORMATION
  Report Type: Report from Study
  Country: US (occurrence: US)
  Receive Date: 20130703
  Receipt Date: 20140410
  Transmission Date: 20141212
  Serious: Yes (Hospitalization)
  Sender: FDA-Public Use
  Company Number: US-AMGEN-USACT2013045662

PATIENT
  Age: 65 Year
  Sex: Male
  Weight: 81.64 kg

DRUGS (27)
  1. METOPROLOL TARTRATE [Concomitant]
     Dosage: 20 MG, UNK
     Route: 048
     Dates: start: 2005, end: 2013
  2. LISINOPRIL [Concomitant]
     Dosage: 40 MG, UNK
     Route: 048
     Dates: start: 2005, end: 2013
  3. HYDROMORPHONE HCL [Concomitant]
     Dosage: 2 MG, UNK
     Route: 048
     Dates: start: 20130408, end: 20130422
  4. AMBIEN [Concomitant]
     Dosage: 10 MG, UNK
     Route: 048
     Dates: start: 20130520, end: 20130731
  5. SIMVASTATIN [Concomitant]
     Dosage: 10 MG, UNK
     Route: 048
     Dates: start: 2005
  6. MELOXICAM [Concomitant]
     Dosage: 15 MG, UNK
     Route: 048
     Dates: start: 20120120, end: 2013
  7. AMLODIPINE BESYLATE [Concomitant]
     Dosage: 10 MG, UNK
     Route: 048
     Dates: start: 2005
  8. ATORVASTATIN [Concomitant]
     Dosage: 10 MG, UNK
     Route: 048
     Dates: start: 2005
  9. GLYBURIDE [Concomitant]
     Dosage: 5 MG, UNK
     Route: 048
     Dates: start: 2005
  10. CHOLECALCIFEROL [Concomitant]
     Dosage: 2000 UNK, UNK
     Route: 048
     Dates: start: 201305, end: 2013
  11. ONDANSETRON [Concomitant]
     Dosage: 4 MG, UNK
     Route: 048
     Dates: start: 20130408
  12. PANTOPRAZOLE [Concomitant]
     Dosage: 40 MG, UNK
     Route: 048
     Dates: start: 20130408
  13. PROCHLORPERAZINE MALEATE [Concomitant]
     Dosage: 10 MG, UNK
     Route: 048
     Dates: start: 20130423
  14. OXYCODONE / ACETAMINOPHEN [Concomitant]
     Dosage: 6 MG, UNK
     Route: 048
     Dates: start: 20130423, end: 2013
  15. METFORMIN [Concomitant]
     Dosage: 500 MG, UNK
     Route: 048
     Dates: start: 2005, end: 20130705
  16. HUMULIN R [Concomitant]
     Dosage: 210 MG, UNK
     Route: 058
     Dates: start: 2005, end: 2013
  17. VITAMIN D3 [Concomitant]
     Dosage: 400 UNK, UNK
     Route: 048
     Dates: start: 20130501, end: 2013
  18. CALCIUM OYSTER SHELL               /00944201/ [Concomitant]
     Dosage: 500 MG, UNK
     Route: 048
     Dates: start: 20130501, end: 2013
  19. FLUCONAZOLE [Concomitant]
     Dosage: 100 MG, UNK
     Route: 048
     Dates: start: 20130530, end: 20130822
  20. BACLOFEN [Concomitant]
     Dosage: 20 MG, UNK
     Route: 048
     Dates: start: 201303, end: 20130520
  21. DOXYCYCLINE HYCLATE [Concomitant]
     Dosage: 100 MG, UNK
     Route: 048
     Dates: start: 20130530, end: 20130709
  22. ACETYLSALICYLIC ACID [Concomitant]
     Dosage: 81 MG, UNK
     Route: 048
     Dates: start: 201304
  23. GLIPIZIDE [Concomitant]
     Dosage: 10 MG, UNK
     Route: 048
     Dates: start: 2005, end: 2013
  24. DENOSUMAB [Suspect]
     Indication: PLASMA CELL MYELOMA
     Dosage: 120 MG, UNK
     Route: 065
     Dates: start: 20130502
  25. BORTEZOMIB [Concomitant]
     Dosage: UNK
     Dates: start: 20130429, end: 20130909
  26. LENALIDOMIDE [Concomitant]
     Dosage: UNK
     Dates: start: 20130429, end: 20130909
  27. DEXAMETHASONE [Concomitant]
     Dosage: UNK
     Dates: start: 20130429, end: 20130909

REACTIONS (1)
  - Pneumonia [Recovered/Resolved]
